FAERS Safety Report 13404026 (Version 1)
Quarter: 2017Q2

REPORT INFORMATION
  Report Type: Spontaneous
  Country: US (occurrence: US)
  Receive Date: 20170405
  Receipt Date: 20170405
  Transmission Date: 20170830
  Serious: No
  Sender: FDA-Public Use
  Company Number: None

PATIENT
  Age: 36 Year
  Sex: Male

DRUGS (1)
  1. EPINEPHRINE EPINEPHRINE [Suspect]
     Active Substance: EPINEPHRINE
     Route: 042

REACTIONS (5)
  - Blood pressure systolic increased [None]
  - Wrong technique in product usage process [None]
  - Drug prescribing error [None]
  - Heart rate increased [None]
  - Acute myocardial infarction [None]
